FAERS Safety Report 4491289-1 (Version None)
Quarter: 2004Q4

REPORT INFORMATION
  Report Type: 
  Country: None (occurrence: None)
  Receive Date: 20041101
  Receipt Date: 20041101
  Transmission Date: 20050328
  Serious: Yes (Other)
  Sender: FDA-Public Use
  Company Number: None

PATIENT
  Age: 2 Year
  Sex: Female
  Weight: 81.6475 kg

DRUGS (2)
  1. ADVAIR DISKUS 500/50 [Suspect]
     Indication: CHRONIC OBSTRUCTIVE AIRWAYS DISEASE
     Dosage: 2 TIMES DAILY ORAL
     Route: 048
     Dates: start: 20030808, end: 20040216
  2. ADVAIR DISKUS 250/50 [Suspect]
     Indication: CHRONIC OBSTRUCTIVE AIRWAYS DISEASE
     Dosage: 2 T DAILY  ORAL
     Route: 048
     Dates: start: 20040216, end: 20041116

REACTIONS (5)
  - ALOPECIA [None]
  - ARTHRALGIA [None]
  - MUSCLE CRAMP [None]
  - SWELLING [None]
  - WEIGHT INCREASED [None]
